FAERS Safety Report 21909472 (Version 3)
Quarter: 2023Q1

REPORT INFORMATION
  Report Type: Spontaneous
  Country: US (occurrence: US)
  Receive Date: 20230125
  Receipt Date: 20230131
  Transmission Date: 20230418
  Serious: No
  Sender: FDA-Public Use
  Company Number: US-PFIZER INC-202200857166

PATIENT
  Age: 85 Year
  Sex: Female
  Weight: 54.43 kg

DRUGS (10)
  1. VYNDAMAX [Suspect]
     Active Substance: TAFAMIDIS
     Indication: Cardiac amyloidosis
     Dosage: 61 MG
     Dates: start: 202201
  2. TORSEMIDE [Concomitant]
     Active Substance: TORSEMIDE
     Dosage: 10 MG
  3. LEVOTHYROXINE [Concomitant]
     Active Substance: LEVOTHYROXINE
     Indication: Thyroid disorder
     Dosage: 75 UG, DAILY
  4. AMIODARONE HYDROCHLORIDE [Concomitant]
     Active Substance: AMIODARONE HYDROCHLORIDE
     Dosage: 100 MG, DAILY
  5. VALSARTAN [Concomitant]
     Active Substance: VALSARTAN
     Dosage: 40 MG, 1X/DAY
  6. ELIQUIS [Concomitant]
     Active Substance: APIXABAN
     Dosage: 2.5 MG, 2X/DAY
  7. DIGOXIN [Concomitant]
     Active Substance: DIGOXIN
     Dosage: 3 TIMES A WEEK
  8. METOPROLOL [Concomitant]
     Active Substance: METOPROLOL
     Indication: Hypertension
     Dosage: 50 MG, 2X/DAY
  9. METOPROLOL [Concomitant]
     Active Substance: METOPROLOL
     Dosage: CUT THE DOSAGE IN HALF IF BLOOD PRESSURE IS TOO LOW
  10. PROPEROL [Concomitant]
     Indication: Hypertension

REACTIONS (3)
  - Dyspnoea [Unknown]
  - Muscular weakness [Unknown]
  - Blood test abnormal [Unknown]
